FAERS Safety Report 13614454 (Version 4)
Quarter: 2018Q2

REPORT INFORMATION
  Report Type: Report from Study
  Country: US (occurrence: US)
  Receive Date: 20170606
  Receipt Date: 20180413
  Transmission Date: 20180711
  Serious: Yes (Hospitalization)
  Sender: FDA-Public Use
  Company Number: PHEH2017US016976

PATIENT
  Sex: Female

DRUGS (1)
  1. GILENYA [Suspect]
     Active Substance: FINGOLIMOD HYDROCHLORIDE
     Indication: PRODUCT USED FOR UNKNOWN INDICATION
     Dosage: 0.5 MG, QD
     Route: 048

REACTIONS (7)
  - Muscle spasticity [Unknown]
  - Confusional state [Unknown]
  - Multiple sclerosis relapse [Recovered/Resolved]
  - Ataxia [Unknown]
  - Visual impairment [Unknown]
  - Dehydration [Unknown]
  - Tremor [Unknown]
